FAERS Safety Report 12925351 (Version 1)
Quarter: 2016Q4

REPORT INFORMATION
  Report Type: Spontaneous
  Country: US (occurrence: US)
  Receive Date: 20161108
  Receipt Date: 20161108
  Transmission Date: 20170207
  Serious: No
  Sender: FDA-Public Use
  Company Number: US-SA-2016SA149927

PATIENT
  Age: 82 Year
  Sex: Male

DRUGS (2)
  1. PRALUENT [Suspect]
     Active Substance: ALIROCUMAB
     Route: 065
     Dates: start: 20160713
  2. ALIROCUMAB PREFILLED PEN [Concomitant]
     Active Substance: ALIROCUMAB
     Dates: start: 20160713

REACTIONS (4)
  - Ocular discomfort [Unknown]
  - Diarrhoea [Unknown]
  - Abdominal pain [Unknown]
  - Anxiety [Unknown]

NARRATIVE: CASE EVENT DATE: 2016
